FAERS Safety Report 11616694 (Version 2)
Quarter: 2015Q4

REPORT INFORMATION
  Report Type: Report from Study
  Country: US (occurrence: US)
  Receive Date: 20151009
  Receipt Date: 20151124
  Transmission Date: 20160304
  Serious: No
  Sender: FDA-Public Use
  Company Number: US-AMGEN-USASL2015103867

PATIENT
  Age: 67 Year
  Sex: Female

DRUGS (3)
  1. ENBREL [Suspect]
     Active Substance: ETANERCEPT
     Indication: RHEUMATOID ARTHRITIS
     Dosage: 50 MG, QWK
     Route: 065
  2. METHOTREXATE [Concomitant]
     Active Substance: METHOTREXATE
     Dosage: UNK UNK, BID
  3. LANTUS [Concomitant]
     Active Substance: INSULIN GLARGINE
     Dosage: UNK UNK, BID

REACTIONS (7)
  - Musculoskeletal stiffness [Unknown]
  - Headache [Unknown]
  - Blood glucose increased [Recovering/Resolving]
  - Herpes zoster [Recovering/Resolving]
  - Injection site pain [Unknown]
  - Injection site extravasation [Unknown]
  - Drug administration error [Unknown]

NARRATIVE: CASE EVENT DATE: 201509
